FAERS Safety Report 17902213 (Version 2)
Quarter: 2021Q2

REPORT INFORMATION
  Report Type: Spontaneous
  Country: US (occurrence: US)
  Receive Date: 20200616
  Receipt Date: 20210615
  Transmission Date: 20210717
  Serious: Yes (Death, Hospitalization, Other)
  Sender: FDA-Public Use
  Company Number: US-ASTRAZENECA-2020SE75643

PATIENT
  Age: 42 Year
  Sex: Female

DRUGS (14)
  1. FOLIC ACID. [Concomitant]
     Active Substance: FOLIC ACID
  2. IMDUR [Concomitant]
     Active Substance: ISOSORBIDE MONONITRATE
  3. PROTONIX [Concomitant]
     Active Substance: PANTOPRAZOLE SODIUM
  4. NEXIUM [Suspect]
     Active Substance: ESOMEPRAZOLE MAGNESIUM
     Indication: GASTROOESOPHAGEAL REFLUX DISEASE
     Route: 048
     Dates: start: 2009, end: 2016
  5. ECOTRIN [Concomitant]
     Active Substance: ASPIRIN
  6. MIRALAX [Concomitant]
     Active Substance: POLYETHYLENE GLYCOL 3350
  7. CELEXA [Concomitant]
     Active Substance: CITALOPRAM HYDROBROMIDE
  8. PRILOSEC [Suspect]
     Active Substance: OMEPRAZOLE MAGNESIUM
     Indication: GASTROOESOPHAGEAL REFLUX DISEASE
     Route: 048
     Dates: start: 2009, end: 2016
  9. GABAPENTIN. [Concomitant]
     Active Substance: GABAPENTIN
  10. LOSARTAN. [Concomitant]
     Active Substance: LOSARTAN
  11. CYMBALTA [Concomitant]
     Active Substance: DULOXETINE HYDROCHLORIDE
  12. XANAX [Concomitant]
     Active Substance: ALPRAZOLAM
  13. COREG [Concomitant]
     Active Substance: CARVEDILOL
  14. PLAVIX [Concomitant]
     Active Substance: CLOPIDOGREL BISULFATE

REACTIONS (7)
  - Mucosal atrophy [Fatal]
  - Upper gastrointestinal haemorrhage [Fatal]
  - End stage renal disease [Unknown]
  - Renal failure [Not Recovered/Not Resolved]
  - Gastritis erosive [Fatal]
  - Chronic kidney disease [Not Recovered/Not Resolved]
  - Hypovolaemic shock [Fatal]

NARRATIVE: CASE EVENT DATE: 2009
